FAERS Safety Report 4848301-7 (Version None)
Quarter: 2005Q4

REPORT INFORMATION
  Report Type: 
  Country: None (occurrence: None)
  Receive Date: 20051115
  Receipt Date: 20050813
  Transmission Date: 20060501
  Serious: Yes (Other)
  Sender: FDA-Public Use
  Company Number: 414337

PATIENT
  Age: 52 Year
  Sex: Female

DRUGS (9)
  1. PEGASYS [Suspect]
     Indication: HEPATITIS C VIRUS
     Dosage: 180 MCG 1 PER WEEK SUBCUTANEOUS
     Route: 058
     Dates: start: 20050728, end: 20050811
  2. COPEGUS [Suspect]
     Indication: HEPATITIS C VIRUS
     Dosage: 200 MG 5 PER 1 DAY ORAL
     Route: 048
     Dates: start: 20050728
  3. AVINZA (MORPHINE) [Concomitant]
  4. MORPHINE [Concomitant]
  5. MOBIC [Concomitant]
  6. ROBAXIN [Concomitant]
  7. FLEXERIL [Concomitant]
  8. NORTRIPTYLINE HCL [Concomitant]
  9. TRAZODONE HCL [Concomitant]

REACTIONS (4)
  - ANAEMIA [None]
  - NEUTROPHIL COUNT DECREASED [None]
  - SINUSITIS [None]
  - WHITE BLOOD CELL COUNT DECREASED [None]
